FAERS Safety Report 6664284-1 (Version None)
Quarter: 2010Q2

REPORT INFORMATION
  Report Type: 
  Country: None (occurrence: None)
  Receive Date: 20100401
  Receipt Date: 20100323
  Transmission Date: 20101027
  Serious: Yes (Hospitalization)
  Sender: FDA-Public Use
  Company Number: PHHY2010BE13920

PATIENT
  Age: 10 Year
  Sex: Female
  Weight: 22 kg

DRUGS (3)
  1. DEFERASIROX [Suspect]
     Dosage: 625 MG DAILY
  2. RED BLOOD CELLS [Concomitant]
     Dosage: ONCE EVERY 2 WEEKS
  3. FOLIC ACID [Concomitant]
     Dosage: 1 MG DAILY

REACTIONS (7)
  - ABDOMINAL PAIN UPPER [None]
  - DECREASED APPETITE [None]
  - FAECES DISCOLOURED [None]
  - GASTRIC ULCER [None]
  - HAEMATEMESIS [None]
  - HEPATOMEGALY [None]
  - NAUSEA [None]
